FAERS Safety Report 5639859-9 (Version None)
Quarter: 2008Q1

REPORT INFORMATION
  Report Type: 
  Country: None (occurrence: None)
  Receive Date: 20080227
  Receipt Date: 20080213
  Transmission Date: 20080703
  Serious: Yes (Hospitalization)
  Sender: FDA-Public Use
  Company Number: US-JNJFOC-20071110241

PATIENT
  Sex: Female

DRUGS (4)
  1. ORTHO EVRA [Suspect]
     Indication: CONTRACEPTION
     Route: 062
  2. RISPERDAL [Suspect]
     Indication: SCHIZOAFFECTIVE DISORDER
  3. CELEXA [Concomitant]
  4. STELAZINE [Concomitant]

REACTIONS (1)
  - CEREBROVASCULAR ACCIDENT [None]
